FAERS Safety Report 10267279 (Version 1)
Quarter: 2014Q2

REPORT INFORMATION
  Report Type: Report from Study
  Country: US (occurrence: US)
  Receive Date: 20140630
  Receipt Date: 20140630
  Transmission Date: 20141212
  Serious: Yes (Hospitalization)
  Sender: FDA-Public Use
  Company Number: PHEH2014US012852

PATIENT
  Sex: Female

DRUGS (1)
  1. SIGNIFOR [Suspect]

REACTIONS (1)
  - Adverse drug reaction [Unknown]
